FAERS Safety Report 21660119 (Version 1)
Quarter: 2022Q4

REPORT INFORMATION
  Report Type: Report from Study
  Country: GB (occurrence: GB)
  Receive Date: 20221130
  Receipt Date: 20221130
  Transmission Date: 20230113
  Serious: Yes (Death, Hospitalization, Other)
  Sender: FDA-Public Use
  Company Number: GB-CELLTRION INC.-2022GB019940

PATIENT

DRUGS (22)
  1. TRASTUZUMAB [Suspect]
     Active Substance: TRASTUZUMAB
     Indication: Breast cancer metastatic
     Dosage: 567 MILLIGRAM, MONTHLY
     Route: 042
     Dates: start: 20150515, end: 20150515
  2. TRASTUZUMAB [Suspect]
     Active Substance: TRASTUZUMAB
     Dosage: 567 MILLIGRAM, MONTHLY
     Route: 042
     Dates: start: 20150515, end: 20150515
  3. TRASTUZUMAB [Suspect]
     Active Substance: TRASTUZUMAB
     Dosage: 567 MILLIGRAM, MONTHLY
     Route: 042
     Dates: start: 20150515, end: 20150515
  4. TRASTUZUMAB [Suspect]
     Active Substance: TRASTUZUMAB
     Dosage: 420 MILLIGRAM, EVERY 3 WEEKS (CUMULATIVE DOSE: 43500.0 MG)
     Route: 042
     Dates: start: 20150608, end: 20160706
  5. TRASTUZUMAB [Suspect]
     Active Substance: TRASTUZUMAB
     Dosage: 420 MILLIGRAM, EVERY 3 WEEKS
     Route: 042
     Dates: start: 20150608, end: 20160706
  6. TRASTUZUMAB [Suspect]
     Active Substance: TRASTUZUMAB
     Dosage: 420 MILLIGRAM, EVERY 3 WEEKS
     Route: 042
     Dates: start: 20150608, end: 20160706
  7. TRASTUZUMAB [Suspect]
     Active Substance: TRASTUZUMAB
     Dosage: 378 MILLIGRAM, EVERY 3 WEEKS (CUMULATIVE DOSE: 31680.0 MG)
     Route: 042
     Dates: start: 20160727
  8. TRASTUZUMAB [Suspect]
     Active Substance: TRASTUZUMAB
     Dosage: 378 MILLIGRAM, EVERY 3 WEEKS
     Route: 042
     Dates: start: 20160727
  9. TRASTUZUMAB [Suspect]
     Active Substance: TRASTUZUMAB
     Dosage: 378 MILLIGRAM, EVERY 3 WEEKS
     Route: 042
     Dates: start: 20160727
  10. DOCETAXEL [Suspect]
     Active Substance: DOCETAXEL
     Indication: Breast cancer metastatic
     Dosage: 136 MILLIGRAM, EVERY 3 WEEKS (CUMULATIVE DOSE TO FIRST REACTION: 14215.238 MG)
     Route: 042
     Dates: start: 20150519, end: 20150519
  11. DOCETAXEL [Suspect]
     Active Substance: DOCETAXEL
     Dosage: 136 MILLIGRAM, EVERY 3 WEEKS (CUMULATIVE DOSE TO FIRST REACTION: 14215.238 MG)
     Route: 042
     Dates: start: 20150519, end: 20150519
  12. DOCETAXEL [Suspect]
     Active Substance: DOCETAXEL
     Dosage: 100 MILLIGRAM, EVERY 3 WEEKS (NUMBER OF REGIMES ARE 6 CYCLES; CUMULATIVE DOSE: 10357.143 MG)
     Route: 042
     Dates: start: 20150608, end: 20150904
  13. DOCETAXEL [Suspect]
     Active Substance: DOCETAXEL
     Dosage: 100 MILLIGRAM, EVERY 3 WEEKS (NUMBER OF REGIMES ARE 6 CYCLES; CUMULATIVE DOSE: 10357.143 MG)
     Route: 042
     Dates: start: 20150608, end: 20150904
  14. PERTUZUMAB [Suspect]
     Active Substance: PERTUZUMAB
     Indication: Breast cancer metastatic
     Dosage: 840 MILLIGRAM, EVERY 3 WEEKS
     Route: 042
     Dates: start: 20150518, end: 20150518
  15. PERTUZUMAB [Suspect]
     Active Substance: PERTUZUMAB
     Dosage: 840 MILLIGRAM, EVERY 3 WEEKS
     Route: 042
     Dates: start: 20150518, end: 20150518
  16. PERTUZUMAB [Suspect]
     Active Substance: PERTUZUMAB
     Dosage: 420 MILLIGRAM, EVERY 3 WEEKS (CUMULATIVE DOSE: 43500 MG)
     Route: 042
     Dates: start: 20150608
  17. PERTUZUMAB [Suspect]
     Active Substance: PERTUZUMAB
     Dosage: 420 MILLIGRAM, EVERY 3 WEEKS (CUMULATIVE DOSE: 43500 MG)
     Route: 042
     Dates: start: 20150608
  18. COCODAMOL [Concomitant]
     Active Substance: ACETAMINOPHEN\CODEINE PHOSPHATE
     Indication: Arthralgia
     Dosage: 1 AS NECESSARY
     Route: 048
     Dates: start: 20151111
  19. IBUPROFEN [Concomitant]
     Active Substance: IBUPROFEN
     Indication: Arthralgia
     Dosage: 200 MILLIGRAM AS NECESSARY
     Route: 048
     Dates: start: 20151111
  20. SULFASALAZINE [Concomitant]
     Active Substance: SULFASALAZINE
     Dosage: 500 MILLIGRAM AS NECESSARY
     Route: 048
  21. VERAPAMIL [Concomitant]
     Active Substance: VERAPAMIL HYDROCHLORIDE
     Dosage: 120 MILLIGRAM, QD
     Route: 048
     Dates: start: 20170711
  22. PFIZER-BIONTECH COVID-19 VACCINE [Concomitant]
     Active Substance: TOZINAMERAN

REACTIONS (1)
  - Cardiac arrest [Fatal]

NARRATIVE: CASE EVENT DATE: 20210522
